FAERS Safety Report 5114165-X (Version None)
Quarter: 2006Q3

REPORT INFORMATION
  Report Type: 
  Country: None (occurrence: None)
  Receive Date: 20060920
  Receipt Date: 20060907
  Transmission Date: 20061208
  Serious: Yes (Hospitalization)
  Sender: FDA-Public Use
  Company Number: 2006108636

PATIENT
  Age: 51 Year
  Sex: Female

DRUGS (1)
  1. LINEZOLID [Suspect]
     Indication: STAPHYLOCOCCAL SEPSIS
     Dosage: 600 MG (600 MG, DAILY), INTRAVENOUS
     Route: 042
     Dates: start: 20060804, end: 20060808

REACTIONS (4)
  - ABDOMINAL PAIN [None]
  - FLATULENCE [None]
  - NAUSEA [None]
  - VOMITING [None]
